FAERS Safety Report 5444835-5 (Version None)
Quarter: 2007Q3

REPORT INFORMATION
  Report Type: 
  Country: None (occurrence: None)
  Receive Date: 20070906
  Receipt Date: 20070705
  Transmission Date: 20080115
  Serious: No
  Sender: FDA-Public Use
  Company Number: A0645389A

PATIENT
  Sex: Male

DRUGS (9)
  1. REQUIP [Suspect]
     Indication: RESTLESS LEGS SYNDROME
     Dosage: 2MG PER DAY
     Route: 048
     Dates: start: 20070313
  2. LEXAPRO [Concomitant]
  3. ACLOVATE [Concomitant]
  4. ASPIRIN [Concomitant]
  5. VITAMINS [Concomitant]
  6. UNKNOWN MEDICATION [Concomitant]
  7. PULMICORT [Concomitant]
  8. FORADIL [Concomitant]
  9. SPIRIVA [Concomitant]

REACTIONS (1)
  - DRUG INEFFECTIVE [None]
